FAERS Safety Report 18172022 (Version 1)
Quarter: 2020Q3

REPORT INFORMATION
  Report Type: Spontaneous
  Country: DE (occurrence: DE)
  Receive Date: 20200819
  Receipt Date: 20200819
  Transmission Date: 20201103
  Serious: Yes (Hospitalization, Other)
  Sender: FDA-Public Use
  Company Number: NVSC2020DE226735

PATIENT
  Age: 70 Year
  Sex: Male
  Weight: 111 kg

DRUGS (8)
  1. KYPROLIS [Suspect]
     Active Substance: CARFILZOMIB
     Indication: PLASMA CELL MYELOMA
     Dosage: 20 MG/M2
     Route: 042
     Dates: start: 20190626, end: 20190627
  2. KYPROLIS [Suspect]
     Active Substance: CARFILZOMIB
     Dosage: 45 MG/M2
     Route: 042
     Dates: start: 20190724
  3. OCTAGAM IMMUNE GLOBULIN (HUMAN) [Concomitant]
     Active Substance: HUMAN IMMUNOGLOBULIN G
     Indication: PROPHYLAXIS
     Dosage: 10 G, QMO
     Route: 065
     Dates: start: 20181012
  4. KYPROLIS [Suspect]
     Active Substance: CARFILZOMIB
     Dosage: 56 MG/M2
     Route: 042
     Dates: start: 20190703, end: 20190711
  5. COTRIM E RATIOPHARM [Concomitant]
     Indication: PROPHYLAXIS
     Dosage: 960 MG, QW
     Route: 065
     Dates: start: 20180213
  6. DEXAMETHASONE. [Suspect]
     Active Substance: DEXAMETHASONE
     Indication: PLASMA CELL MYELOMA
     Dosage: 20 MG
     Route: 065
     Dates: start: 20190626
  7. ACICLOBETA [Concomitant]
     Indication: PROPHYLAXIS
     Dosage: 400 MG, QD
     Route: 065
     Dates: start: 20190626
  8. TOREM [Concomitant]
     Active Substance: TORSEMIDE
     Indication: PROPHYLAXIS
     Dosage: 10 MG, QD
     Route: 065
     Dates: start: 20191009

REACTIONS (1)
  - Cardiomyopathy [Not Recovered/Not Resolved]

NARRATIVE: CASE EVENT DATE: 20200207
